FAERS Safety Report 10591066 (Version 1)
Quarter: 2014Q4

REPORT INFORMATION
  Report Type: Spontaneous
  Country: US (occurrence: US)
  Receive Date: 20141118
  Receipt Date: 20141118
  Transmission Date: 20150529
  Serious: Yes (Other)
  Sender: FDA-Public Use
  Company Number: US-BAYER-2014-168759

PATIENT
  Age: 28 Year
  Sex: Female
  Weight: 65.76 kg

DRUGS (2)
  1. IBUPROFEN. [Concomitant]
     Active Substance: IBUPROFEN
  2. ALKA-SELTZER XTRA STRENGTH [Suspect]
     Active Substance: ANHYDROUS CITRIC ACID\ASPIRIN\SODIUM BICARBONATE
     Indication: MALAISE
     Dosage: UNK
     Route: 048

REACTIONS (3)
  - Extra dose administered [Unknown]
  - Abdominal pain upper [Not Recovered/Not Resolved]
  - Haematemesis [Unknown]

NARRATIVE: CASE EVENT DATE: 20141112
